FAERS Safety Report 8822849 (Version 1)
Quarter: 2012Q4

REPORT INFORMATION
  Report Type: 
  Country: FR (occurrence: FR)
  Receive Date: 20121003
  Receipt Date: 20121003
  Transmission Date: 20130627
  Serious: Yes (Hospitalization)
  Sender: FDA-Public Use
  Company Number: FR-ASTRAZENECA-2012SE75589

PATIENT
  Age: 59 Year
  Sex: Male

DRUGS (6)
  1. ZOLADEX [Suspect]
     Indication: PROSTATE CANCER
     Route: 058
  2. CASODEX [Suspect]
     Indication: PROSTATE CANCER
     Route: 048
  3. FLUDEX [Concomitant]
     Dates: start: 2005
  4. COVERSYL [Concomitant]
     Dates: start: 2005
  5. LOXEN [Concomitant]
     Dates: start: 2005
  6. KARDEGIC [Concomitant]
     Dates: start: 2005

REACTIONS (1)
  - Hepatitis acute [Recovered/Resolved]
